FAERS Safety Report 14675404 (Version 1)
Quarter: 2018Q1

REPORT INFORMATION
  Report Type: Spontaneous
  Country: TH (occurrence: TH)
  Receive Date: 20180323
  Receipt Date: 20180323
  Transmission Date: 20180509
  Serious: Yes (Hospitalization)
  Sender: FDA-Public Use
  Company Number: TH-B.I. PHARMACEUTICALS,INC./RIDGEFIELD-2018-BI-015282

PATIENT
  Age: 63 Year
  Sex: Female

DRUGS (7)
  1. GILOTRIF [Suspect]
     Active Substance: AFATINIB
     Route: 065
     Dates: start: 201702
  2. GILOTRIF [Suspect]
     Active Substance: AFATINIB
     Route: 065
     Dates: start: 20171218, end: 20180122
  3. GILOTRIF [Suspect]
     Active Substance: AFATINIB
     Route: 065
  4. GILOTRIF [Suspect]
     Active Substance: AFATINIB
     Route: 065
     Dates: end: 20160926
  5. GILOTRIF [Suspect]
     Active Substance: AFATINIB
     Indication: ADENOCARCINOMA
     Route: 065
     Dates: start: 20150727, end: 20150928
  6. GILOTRIF [Suspect]
     Active Substance: AFATINIB
     Route: 065
     Dates: start: 20160929
  7. LIPITOR [Concomitant]
     Active Substance: ATORVASTATIN CALCIUM
     Indication: DYSLIPIDAEMIA
     Route: 065

REACTIONS (18)
  - Bile duct stone [Unknown]
  - Rash [Unknown]
  - Bronchial disorder [Unknown]
  - Gastrooesophageal reflux disease [Unknown]
  - Stomatitis [Not Recovered/Not Resolved]
  - Pulmonary mass [Unknown]
  - Diarrhoea [Unknown]
  - Paronychia [Not Recovered/Not Resolved]
  - Diarrhoea [Unknown]
  - Pulmonary mass [Unknown]
  - Folliculitis [Unknown]
  - Cholangitis [Unknown]
  - Paronychia [Recovering/Resolving]
  - Paronychia [Unknown]
  - Atrial fibrillation [Unknown]
  - Transaminases increased [Unknown]
  - Dry skin [Recovering/Resolving]
  - Pulmonary mass [Unknown]

NARRATIVE: CASE EVENT DATE: 20150810
